FAERS Safety Report 4946178-2 (Version None)
Quarter: 2006Q1

REPORT INFORMATION
  Report Type: 
  Country: None (occurrence: None)
  Receive Date: 20060118
  Receipt Date: 20050407
  Transmission Date: 20060701
  Serious: Yes (Other)
  Sender: FDA-Public Use
  Company Number: US-JNJFOC-20050304968

PATIENT
  Age: 56 Year
  Sex: Male

DRUGS (3)
  1. DOXIL [Suspect]
     Indication: RENAL CANCER METASTATIC
     Dosage: 70 MG, 1 IN 4 WEEK, INTRAVENOUS
     Route: 042
     Dates: start: 20050216
  2. TOPETECAN (TOPOTECAN HYDROCHLORIDE) [Suspect]
     Indication: RENAL CANCER METASTATIC
     Dosage: 3.5 MG DAYS 1, 8, 15
     Dates: start: 20050216
  3. DILAUDID [Concomitant]

REACTIONS (1)
  - NEUTROPENIA [None]
